FAERS Safety Report 8876559 (Version 1)
Quarter: 2012Q4

REPORT INFORMATION
  Report Type: 
  Country: US (occurrence: US)
  Receive Date: 20121023
  Receipt Date: 20121023
  Transmission Date: 20130627
  Serious: Yes (Hospitalization)
  Sender: FDA-Public Use
  Company Number: US-ASTELLAS-2012US004763

PATIENT
  Sex: Female
  Weight: 63 kg

DRUGS (3)
  1. PROGRAF [Suspect]
     Indication: LIVER TRANSPLANT
     Dosage: 1 mg, UID/QD
     Route: 048
     Dates: start: 20050920
  2. PREDNISONE [Concomitant]
     Indication: LIVER TRANSPLANT
     Dosage: 5 mg, qod
     Route: 048
     Dates: start: 20050920
  3. NADOLOL [Concomitant]
     Indication: ARRHYTHMIA
     Dosage: 20 mg, UID/QD
     Route: 048
     Dates: start: 2006

REACTIONS (3)
  - Thrombosis [Recovered/Resolved]
  - Bronchitis [Recovered/Resolved]
  - Pneumonia [Recovered/Resolved]
